FAERS Safety Report 6151152-7 (Version None)
Quarter: 2009Q2

REPORT INFORMATION
  Report Type: 
  Country: None (occurrence: None)
  Receive Date: 20090410
  Receipt Date: 20090321
  Transmission Date: 20091009
  Serious: Yes (Death, Hospitalization)
  Sender: FDA-Public Use
  Company Number: US-PFIZER INC-2004036779

PATIENT
  Sex: Female
  Weight: 43.3 kg

DRUGS (20)
  1. SILDENAFIL CITRATE [Suspect]
     Indication: PULMONARY HYPERTENSION
     Route: 048
     Dates: start: 20040414, end: 20040604
  2. ALDACTONE [Concomitant]
     Route: 048
     Dates: start: 20040217, end: 20040601
  3. LASIX [Concomitant]
     Route: 048
     Dates: start: 20040316, end: 20040601
  4. WARFARIN SODIUM [Concomitant]
     Route: 048
     Dates: start: 20040111, end: 20040601
  5. ZOLOFT [Concomitant]
     Route: 048
     Dates: start: 20040111, end: 20040601
  6. OXYCODONE HCL [Concomitant]
     Route: 065
     Dates: start: 20040111
  7. NEXIUM [Concomitant]
     Route: 065
     Dates: start: 20040111
  8. ESTRADIOL, COMBINATIONS [Concomitant]
     Route: 048
     Dates: start: 20040111, end: 20040601
  9. LIPRAM [Concomitant]
     Route: 048
     Dates: start: 20040404, end: 20040601
  10. ASCORBIC ACID [Concomitant]
     Route: 048
     Dates: start: 20040414, end: 20040601
  11. PRILOSEC [Concomitant]
     Route: 048
     Dates: start: 20040414, end: 20040601
  12. PERCOCET [Concomitant]
     Route: 048
     Dates: start: 20040212, end: 20040601
  13. AMITRIPTYLINE HCL [Concomitant]
     Route: 048
     Dates: start: 20040111, end: 20040601
  14. INSULATARD NPH HUMAN [Concomitant]
     Route: 058
     Dates: start: 20040428, end: 20040601
  15. POTASSIUM CHLORIDE [Concomitant]
     Route: 048
     Dates: start: 20040416, end: 20040601
  16. MULTI-VITAMINS [Concomitant]
     Route: 048
     Dates: start: 20040504, end: 20040601
  17. XANAX [Concomitant]
     Route: 048
     Dates: start: 20040406, end: 20040601
  18. OXYGEN [Concomitant]
     Route: 045
     Dates: start: 20040526, end: 20040601
  19. ROSE (PETALS) [Concomitant]
     Route: 048
     Dates: start: 20040414, end: 20040601
  20. EPOPROSTENOL [Concomitant]
     Route: 065
     Dates: start: 19970101

REACTIONS (2)
  - RIGHT VENTRICULAR FAILURE [None]
  - SYNCOPE [None]
